FAERS Safety Report 9471423 (Version 1)
Quarter: 2013Q3

REPORT INFORMATION
  Report Type: Spontaneous
  Country: US (occurrence: US)
  Receive Date: 20130822
  Receipt Date: 20130822
  Transmission Date: 20140515
  Serious: No
  Sender: FDA-Public Use
  Company Number: US-009507513-2012SP020146

PATIENT
  Age: 20 Year
  Sex: Female

DRUGS (8)
  1. SAPHRIS [Suspect]
     Indication: ANXIETY
     Dosage: 5 MG, BID
     Route: 060
     Dates: start: 20120207
  2. SAPHRIS [Suspect]
     Indication: DEPRESSION
     Dosage: 15 MG, QD
     Route: 060
     Dates: start: 20120306
  3. SAPHRIS [Suspect]
     Indication: CRYING
     Dosage: 5 MG, HS
     Route: 060
     Dates: end: 20120309
  4. TRI-CYCLEN [Concomitant]
     Indication: PRODUCT USED FOR UNKNOWN INDICATION
  5. CLONOPIN [Concomitant]
     Indication: PRODUCT USED FOR UNKNOWN INDICATION
  6. WELLBUTRIN [Concomitant]
     Indication: PRODUCT USED FOR UNKNOWN INDICATION
  7. DESVENLAFAXINE SUCCINATE [Concomitant]
     Indication: PRODUCT USED FOR UNKNOWN INDICATION
  8. VITAMIN B (UNSPECIFIED) [Concomitant]
     Indication: PRODUCT USED FOR UNKNOWN INDICATION

REACTIONS (11)
  - Oral pain [Not Recovered/Not Resolved]
  - Facial pain [Not Recovered/Not Resolved]
  - Salivary hypersecretion [Recovered/Resolved]
  - Swollen tongue [Not Recovered/Not Resolved]
  - Stomatitis [Not Recovered/Not Resolved]
  - Muscle twitching [Not Recovered/Not Resolved]
  - Tongue disorder [Not Recovered/Not Resolved]
  - Underdose [Recovered/Resolved]
  - Glossodynia [Not Recovered/Not Resolved]
  - Off label use [Recovered/Resolved]
  - Inappropriate schedule of drug administration [Unknown]
